FAERS Safety Report 25751894 (Version 1)
Quarter: 2025Q3

REPORT INFORMATION
  Report Type: Spontaneous
  Country: EU (occurrence: EU)
  Receive Date: 20250902
  Receipt Date: 20250902
  Transmission Date: 20251021
  Serious: Yes (Other)
  Sender: SIGA TECHNOLOGIES, INC.
  Company Number: EU-SIGA Technologies, Inc.-2183663

PATIENT

DRUGS (1)
  1. TPOXX [Suspect]
     Active Substance: TECOVIRIMAT
     Indication: Monkeypox

REACTIONS (1)
  - Alanine aminotransferase increased [Unknown]
